FAERS Safety Report 20086992 (Version 2)
Quarter: 2022Q1

REPORT INFORMATION
  Report Type: Spontaneous
  Country: US (occurrence: US)
  Receive Date: 20211118
  Receipt Date: 20220110
  Transmission Date: 20220424
  Serious: No
  Sender: FDA-Public Use
  Company Number: US-TEVA-2021-US-1977086

PATIENT
  Age: 64 Year
  Sex: Female
  Weight: 108.86 kg

DRUGS (4)
  1. AJOVY [Suspect]
     Active Substance: FREMANEZUMAB-VFRM
     Indication: Migraine
     Dosage: 225/1.5 MG/ML ?LAST DOSE WAS IN OCTOBER
     Route: 065
     Dates: start: 202107
  2. AJOVY [Suspect]
     Active Substance: FREMANEZUMAB-VFRM
  3. PREDNISONE [Suspect]
     Active Substance: PREDNISONE
     Route: 065
  4. NARATRIPTAN [Suspect]
     Active Substance: NARATRIPTAN HYDROCHLORIDE
     Route: 065

REACTIONS (3)
  - Drug ineffective [Unknown]
  - Chest pain [Unknown]
  - Adverse drug reaction [Unknown]
